FAERS Safety Report 9100837 (Version 2)
Quarter: 2013Q1

REPORT INFORMATION
  Report Type: Spontaneous
  Country: US (occurrence: US)
  Receive Date: 20130215
  Receipt Date: 20130306
  Transmission Date: 20140127
  Serious: Yes (Other)
  Sender: FDA-Public Use
  Company Number: US-ROCHE-1190956

PATIENT
  Age: 66 Year
  Sex: Male
  Weight: 105.78 kg

DRUGS (1)
  1. ZELBORAF [Suspect]
     Indication: METASTATIC MALIGNANT MELANOMA
     Route: 065

REACTIONS (5)
  - Skin exfoliation [Unknown]
  - Skin discolouration [Unknown]
  - Rash [Unknown]
  - Erythema [Unknown]
  - Skin hyperpigmentation [Unknown]
